FAERS Safety Report 24336135 (Version 1)
Quarter: 2024Q3

REPORT INFORMATION
  Report Type: Spontaneous
  Country: CN (occurrence: CN)
  Receive Date: 20240919
  Receipt Date: 20240919
  Transmission Date: 20241017
  Serious: No
  Sender: ROCHE
  Company Number: CN-ROCHE-3502842

PATIENT
  Age: 59 Year
  Sex: Female
  Weight: 68.3 kg

DRUGS (3)
  1. TAMIFLU [Suspect]
     Active Substance: OSELTAMIVIR PHOSPHATE
     Indication: Ill-defined disorder
     Route: 048
     Dates: start: 20231231, end: 20240103
  2. VORICONAZOLE [Concomitant]
     Active Substance: VORICONAZOLE
  3. POTASSIUM CHLORIDE [Concomitant]
     Active Substance: POTASSIUM CHLORIDE

REACTIONS (2)
  - Vomiting [Recovered/Resolved]
  - Dizziness [Recovering/Resolving]

NARRATIVE: CASE EVENT DATE: 20240101
